FAERS Safety Report 7751610-5 (Version None)
Quarter: 2011Q3

REPORT INFORMATION
  Report Type: 
  Country: None (occurrence: None)
  Receive Date: 20110914
  Receipt Date: 20110908
  Transmission Date: 20111222
  Serious: Yes (Hospitalization)
  Sender: FDA-Public Use
  Company Number: PHHO2011FR12328

PATIENT
  Sex: Female
  Weight: 66 kg

DRUGS (23)
  1. NEUPOGEN [Concomitant]
     Dosage: 30 UG, UNK
  2. ATORVASTATIN CALCIUM [Concomitant]
  3. BACTRIM [Concomitant]
  4. RAD 666 / RAD 001A [Suspect]
     Indication: RENAL TRANSPLANT
     Dosage: 1.5
     Route: 048
     Dates: start: 20110628
  5. FERROUS SULFATE TAB [Concomitant]
  6. MYCOPHENOLATE MOFETIL (CELLCEPT) [Suspect]
     Dosage: 1 G, UNK
     Route: 048
     Dates: start: 20110716
  7. ZOVIRAX [Concomitant]
     Dosage: 900 MG, UNK
     Route: 042
     Dates: start: 20110716, end: 20110719
  8. PENTACARINAT [Concomitant]
     Dosage: 600 MG, UNK
     Dates: start: 20110715, end: 20110715
  9. VALACYCLOVIR HYDROCHLORIDE [Concomitant]
     Dosage: 2 G, UNK
     Dates: start: 20110720, end: 20110725
  10. NEORAL [Concomitant]
     Dosage: UNK
     Route: 048
  11. TENORMIN [Concomitant]
  12. RAD 666 / RAD 001A [Suspect]
     Dosage: 1.5
     Route: 048
     Dates: start: 20110716, end: 20110719
  13. PREDNISOLONE [Concomitant]
     Dosage: 30 MG, UNK
     Route: 048
     Dates: start: 20110716
  14. PREDNISOLONE [Concomitant]
     Dosage: UNK
     Dates: start: 20110802
  15. AMIKACIN [Concomitant]
     Dosage: 500 MG, UNK
     Route: 042
     Dates: start: 20110716, end: 20110717
  16. MYCOPHENOLATE MOFETIL (CELLCEPT) [Suspect]
     Indication: RENAL TRANSPLANT
     Dosage: 1500 MG, UNK
     Route: 048
     Dates: start: 20110517
  17. PREDNISOLONE [Concomitant]
     Indication: RENAL TRANSPLANT
     Dosage: 7.5 MG, UNK
     Route: 048
     Dates: start: 20110518
  18. AMIKACIN [Concomitant]
     Dosage: 750 MG, UNK
     Route: 042
     Dates: start: 20110715, end: 20110715
  19. ROCEPHIN [Concomitant]
     Dosage: 2 G, UNK
     Route: 042
     Dates: start: 20110715, end: 20110715
  20. ROCEPHIN [Concomitant]
     Dosage: 1 G, UNK
     Route: 042
     Dates: start: 20110716, end: 20110717
  21. XYLOCAINE [Concomitant]
  22. AUGMENTIN '125' [Concomitant]
     Dosage: 1500 MG, UNK
     Route: 048
     Dates: end: 20110723
  23. OMEPRAZOLE [Concomitant]

REACTIONS (3)
  - FEBRILE NEUTROPENIA [None]
  - APHTHOUS STOMATITIS [None]
  - LEUKOPENIA [None]
